FAERS Safety Report 6131155-9 (Version None)
Quarter: 2009Q1

REPORT INFORMATION
  Report Type: 
  Country: None (occurrence: None)
  Receive Date: 20090325
  Receipt Date: 20090325
  Transmission Date: 20090719
  Serious: Yes (Hospitalization)
  Sender: FDA-Public Use
  Company Number: PHHO2001CZ02786

PATIENT
  Sex: Female
  Weight: 71 kg

DRUGS (8)
  1. CGS 20267 T30748+ [Suspect]
     Indication: BREAST CANCER
     Dosage: 2.5 MG, QD
     Route: 048
     Dates: start: 19980723, end: 20010404
  2. ANOPYRIN [Concomitant]
  3. EUPHYLLIN CR [Concomitant]
  4. LESCOL [Concomitant]
  5. VASOCARDIN [Concomitant]
  6. PRESTARIUM [Concomitant]
  7. MINIDIAB [Concomitant]
  8. MODURETIC 5-50 [Concomitant]

REACTIONS (4)
  - ARTERIAL BYPASS OPERATION [None]
  - CONDITION AGGRAVATED [None]
  - CORONARY ARTERY BYPASS [None]
  - VENOUS THROMBOSIS LIMB [None]
